FAERS Safety Report 12583689 (Version 4)
Quarter: 2018Q1

REPORT INFORMATION
  Report Type: Report from Study
  Country: None (occurrence: US)
  Receive Date: 20160722
  Receipt Date: 20180131
  Transmission Date: 20180508
  Serious: Yes (Hospitalization)
  Sender: FDA-Public Use
  Company Number: US-ABBVIE-16P-163-1553057-00

PATIENT
  Age: 82 Year
  Sex: Female
  Weight: 53 kg

DRUGS (32)
  1. VENETOCLAX. [Suspect]
     Active Substance: VENETOCLAX
     Route: 048
     Dates: start: 20150112, end: 20150112
  2. OXYCODONE IMMEDIATE RELEASE TABLET [Concomitant]
     Indication: BACK PAIN
  3. OXYCODONE IMMEDIATE RELEASE TABLET [Concomitant]
     Indication: OSTEOARTHRITIS
  4. OXYCODONE IMMEDIATE RELEASE TABLET [Concomitant]
     Indication: PAIN IN EXTREMITY
  5. VENETOCLAX. [Suspect]
     Active Substance: VENETOCLAX
     Route: 048
     Dates: start: 20150825, end: 20160201
  6. GABAPENTIN. [Concomitant]
     Active Substance: GABAPENTIN
     Dosage: AT BED TIME
     Route: 048
     Dates: start: 2014
  7. COMPAZINE [Concomitant]
     Active Substance: PROCHLORPERAZINE MALEATE
     Indication: RETCHING
     Route: 048
     Dates: start: 20150126
  8. COMPAZINE [Concomitant]
     Active Substance: PROCHLORPERAZINE MALEATE
     Indication: PROPHYLAXIS OF NAUSEA AND VOMITING
  9. VENETOCLAX. [Suspect]
     Active Substance: VENETOCLAX
     Indication: ACUTE MYELOID LEUKAEMIA
     Route: 048
     Dates: start: 20150109, end: 20150109
  10. VENETOCLAX. [Suspect]
     Active Substance: VENETOCLAX
     Route: 048
     Dates: start: 20150111, end: 20150111
  11. HYDROXYZINE HCL [Concomitant]
     Active Substance: HYDROXYZINE HYDROCHLORIDE
     Indication: PRURITUS
     Dosage: 10-20-MG, TID PRN
     Route: 048
     Dates: start: 20150117
  12. OXYCODONE IMMEDIATE RELEASE TABLET [Concomitant]
     Indication: HIP SURGERY
  13. OXYCODONE IMMEDIATE RELEASE TABLET [Concomitant]
     Indication: HEADACHE
  14. COMPAZINE [Concomitant]
     Active Substance: PROCHLORPERAZINE MALEATE
     Indication: PROPHYLAXIS
  15. ALLEGRA [Concomitant]
     Active Substance: FEXOFENADINE HYDROCHLORIDE
     Indication: SEASONAL ALLERGY
     Route: 048
     Dates: start: 20160119
  16. VENETOCLAX. [Suspect]
     Active Substance: VENETOCLAX
     Route: 048
     Dates: start: 20160315
  17. AZACITIDINE. [Suspect]
     Active Substance: AZACITIDINE
     Route: 042
     Dates: start: 20151215, end: 20160125
  18. RANITIDINE HCL [Concomitant]
     Active Substance: RANITIDINE HYDROCHLORIDE
     Indication: PEPTIC ULCER
     Route: 048
     Dates: start: 2014, end: 20150106
  19. ALLEGRA [Concomitant]
     Active Substance: FEXOFENADINE HYDROCHLORIDE
     Indication: PROPHYLAXIS
  20. FLUTICASONE PROPIONATE. [Concomitant]
     Active Substance: FLUTICASONE PROPIONATE
     Indication: SEASONAL ALLERGY
     Dosage: 2 SPRAY
     Route: 045
     Dates: start: 20160119
  21. AZACITIDINE. [Suspect]
     Active Substance: AZACITIDINE
     Route: 042
     Dates: start: 20160315
  22. GABAPENTIN. [Concomitant]
     Active Substance: GABAPENTIN
     Indication: LUMBAR RADICULOPATHY
     Route: 048
     Dates: start: 2014
  23. MECLIZINE HCL [Concomitant]
     Active Substance: MECLIZINE HYDROCHLORIDE
     Indication: VERTIGO
     Dosage: TID PRN
     Route: 048
     Dates: start: 2014
  24. AZACITIDINE. [Suspect]
     Active Substance: AZACITIDINE
     Indication: ACUTE MYELOID LEUKAEMIA
     Route: 042
     Dates: start: 20150108, end: 20151019
  25. COLACE [Concomitant]
     Active Substance: DOCUSATE SODIUM
     Indication: CONSTIPATION
     Route: 048
     Dates: start: 2014
  26. RANITIDINE HCL [Concomitant]
     Active Substance: RANITIDINE HYDROCHLORIDE
     Route: 048
     Dates: start: 20150114
  27. COMPAZINE [Concomitant]
     Active Substance: PROCHLORPERAZINE MALEATE
     Indication: NAUSEA
     Route: 042
     Dates: start: 20150110, end: 20150110
  28. COMPAZINE [Concomitant]
     Active Substance: PROCHLORPERAZINE MALEATE
     Indication: PROPHYLAXIS OF NAUSEA AND VOMITING
  29. OXYCODONE IMMEDIATE RELEASE TABLET [Concomitant]
     Indication: KNEE ARTHROPLASTY
     Route: 048
     Dates: start: 20150602
  30. FLUTICASONE PROPIONATE. [Concomitant]
     Active Substance: FLUTICASONE PROPIONATE
     Indication: PROPHYLAXIS
  31. VENETOCLAX. [Suspect]
     Active Substance: VENETOCLAX
     Route: 048
     Dates: start: 20150110, end: 20150110
  32. VENETOCLAX. [Suspect]
     Active Substance: VENETOCLAX
     Route: 048
     Dates: start: 20150113, end: 20150804

REACTIONS (1)
  - Gastrointestinal haemorrhage [Recovered/Resolved]

NARRATIVE: CASE EVENT DATE: 20160202
